FAERS Safety Report 10723564 (Version 1)
Quarter: 2015Q1

REPORT INFORMATION
  Report Type: Spontaneous
  Country: US (occurrence: None)
  Receive Date: 20150114
  Receipt Date: 20150114
  Transmission Date: 20150721
  Serious: Yes (Other)
  Sender: FDA-Public Use
  Company Number: 2014PL000212

PATIENT
  Age: 55 Year
  Sex: Female

DRUGS (3)
  1. PROLEUKIN [Suspect]
     Active Substance: ALDESLEUKIN
     Indication: MALIGNANT MELANOMA
     Dosage: 600,000 U/KG, EVERY 8 HOURS FOR A MAXIMUM OF 12 DOSES EVERY THREE WEEKS
     Dates: start: 201205
  2. LEVOTHYROXINE (LEVOTHYROXINE) [Concomitant]
     Active Substance: LEVOTHYROXINE
  3. ZOLPIDEM (ZOLPIDEM) [Concomitant]
     Active Substance: ZOLPIDEM TARTRATE

REACTIONS (6)
  - Stress cardiomyopathy [None]
  - Influenza like illness [None]
  - Ventricular hypokinesia [None]
  - Tricuspid valve incompetence [None]
  - Electrocardiogram T wave inversion [None]
  - Hypotension [None]
